FAERS Safety Report 12212351 (Version 1)
Quarter: 2016Q1

REPORT INFORMATION
  Report Type: Other
  Country: US (occurrence: US)
  Receive Date: 20160325
  Receipt Date: 20160325
  Transmission Date: 20160526
  Serious: No
  Sender: FDA-Public Use
  Company Number: US-DEP_02592_2015

PATIENT
  Age: 62 Year
  Sex: Male
  Weight: 105 kg

DRUGS (12)
  1. VITAMIN B3 [Concomitant]
     Active Substance: NIACIN
     Indication: VITAMIN SUPPLEMENTATION
     Dosage: DF
  2. GRALISE [Suspect]
     Active Substance: GABAPENTIN
     Indication: INTERVERTEBRAL DISC DEGENERATION
     Dosage: SAMPLE PACK, TITRATED UP TO 900 MG, ONCE DAILY
     Route: 048
     Dates: start: 20150313
  3. METFORMIN [Concomitant]
     Active Substance: METFORMIN HYDROCHLORIDE
     Route: 048
     Dates: start: 2009
  4. METFORMIN [Concomitant]
     Active Substance: METFORMIN HYDROCHLORIDE
     Indication: TYPE 2 DIABETES MELLITUS
     Dosage: DF
     Route: 048
     Dates: start: 2009, end: 2012
  5. VITAMIN D [Concomitant]
     Active Substance: CHOLECALCIFEROL
     Indication: VITAMIN SUPPLEMENTATION
     Dosage: DF
  6. GRALISE [Suspect]
     Active Substance: GABAPENTIN
     Indication: MUSCLE SPASMS
     Dosage: SAMPLE PACK, TITRATED UP TO 900 MG, ONCE DAILY
     Route: 048
     Dates: start: 20150313
  7. GRALISE [Suspect]
     Active Substance: GABAPENTIN
     Indication: OFF LABEL USE
     Dosage: SAMPLE PACK, TITRATED UP TO 900 MG, ONCE DAILY
     Route: 048
     Dates: start: 20150313
  8. JANUVIA [Concomitant]
     Active Substance: SITAGLIPTIN PHOSPHATE
     Indication: TYPE 2 DIABETES MELLITUS
     Dosage: DF
     Dates: start: 2015
  9. BETA PROSTATE [Concomitant]
     Indication: VITAMIN SUPPLEMENTATION
     Dosage: DF
  10. VITAMIN A-Z [Concomitant]
     Indication: VITAMIN SUPPLEMENTATION
     Dosage: DF
  11. LISNIOPRIL [Concomitant]
     Indication: BLOOD PRESSURE ABNORMAL
     Dosage: 20/25 MG
     Route: 048
     Dates: start: 2013
  12. GRALISE [Suspect]
     Active Substance: GABAPENTIN
     Indication: PAIN
     Dosage: SAMPLE PACK, TITRATED UP TO 900 MG, ONCE DAILY
     Route: 048
     Dates: start: 20150313

REACTIONS (5)
  - Condition aggravated [Not Recovered/Not Resolved]
  - Micturition urgency [Not Recovered/Not Resolved]
  - Peripheral swelling [Not Recovered/Not Resolved]
  - Pollakiuria [Not Recovered/Not Resolved]
  - Urinary incontinence [Not Recovered/Not Resolved]

NARRATIVE: CASE EVENT DATE: 201503
